FAERS Safety Report 12967073 (Version 2)
Quarter: 2017Q1

REPORT INFORMATION
  Report Type: Spontaneous
  Country: US (occurrence: US)
  Receive Date: 20161123
  Receipt Date: 20170106
  Transmission Date: 20170428
  Serious: No
  Sender: FDA-Public Use
  Company Number: US-B.I. PHARMACEUTICALS,INC./RIDGEFIELD-2016-BI-080235

PATIENT
  Sex: Male

DRUGS (3)
  1. ALKA-SELZER [Concomitant]
     Indication: PRODUCT USED FOR UNKNOWN INDICATION
     Route: 065
     Dates: start: 2014
  2. TUMS [Concomitant]
     Active Substance: CALCIUM CARBONATE
     Indication: PRODUCT USED FOR UNKNOWN INDICATION
     Dates: start: 2016
  3. ZANTAC MAXIMUM STRENGTH 150 COOL MINT [Suspect]
     Active Substance: RANITIDINE HYDROCHLORIDE
     Indication: DYSPEPSIA
     Dosage: 1-2 TABLETS DAILY;
     Route: 048
     Dates: start: 2014

REACTIONS (3)
  - Incorrect drug administration duration [Unknown]
  - Pain in extremity [Not Recovered/Not Resolved]
  - Drug effect variable [Not Recovered/Not Resolved]

NARRATIVE: CASE EVENT DATE: 2014
